FAERS Safety Report 21895723 (Version 1)
Quarter: 2023Q1

REPORT INFORMATION
  Report Type: Report from Study
  Country: GB (occurrence: GB)
  Receive Date: 20230123
  Receipt Date: 20230123
  Transmission Date: 20230418
  Serious: Yes (Other)
  Sender: FDA-Public Use
  Company Number: GB-CELLTRION INC.-2022GB015977

PATIENT

DRUGS (11)
  1. BEVACIZUMAB [Suspect]
     Active Substance: BEVACIZUMAB
     Indication: Hepatocellular carcinoma
     Dosage: 1400 MG
     Dates: start: 20211105
  2. ATEZOLIZUMAB [Suspect]
     Active Substance: ATEZOLIZUMAB
     Indication: Hepatocellular carcinoma
     Dosage: 1200 MG (DATE OF PRIOR ATEZOLIZUMAB INFUSION WAS 11/MAY/2021)
     Route: 042
     Dates: start: 20211105
  3. COAL TAR\COCONUT OIL\SALICYLIC ACID [Concomitant]
     Active Substance: COAL TAR\COCONUT OIL\SALICYLIC ACID
     Dosage: 1 DF, AS NECESSARY, SHAMPOO
     Dates: start: 20211012
  4. FOLIC ACID [Concomitant]
     Active Substance: FOLIC ACID
     Dosage: 1 DF, EVERY 1 DAY
     Dates: start: 20211012
  5. CHOLECALCIFEROL [Concomitant]
     Active Substance: CHOLECALCIFEROL
     Dosage: 1 DF, AS NECESSARY
     Dates: start: 20211012
  6. PENICILLIN V [Concomitant]
     Active Substance: PENICILLIN V
     Dosage: 2 DF, EVERY 1 DAY
     Dates: start: 20211012
  7. RAMIPRIL [Concomitant]
     Active Substance: RAMIPRIL
     Dosage: 1 DF, EVERY 1 DAY
     Dates: start: 20210508
  8. TAMSULOSIN [Concomitant]
     Active Substance: TAMSULOSIN
     Dosage: 1 DF, EVERY 1 DAY
     Dates: start: 20211012
  9. VITAMIN B [Concomitant]
     Active Substance: VITAMIN B
  10. CHLOROCRESOL [Concomitant]
     Active Substance: CHLOROCRESOL
  11. ATEZOLIZUMAB [Concomitant]
     Active Substance: ATEZOLIZUMAB

REACTIONS (6)
  - Hypothyroidism [Recovering/Resolving]
  - COVID-19 [Recovered/Resolved]
  - Neoplasm [Unknown]
  - Proteinuria [Not Recovered/Not Resolved]
  - Dry skin [Not Recovered/Not Resolved]
  - Off label use [Unknown]

NARRATIVE: CASE EVENT DATE: 20220406
